FAERS Safety Report 9843652 (Version 1)
Quarter: 2013Q4

REPORT INFORMATION
  Report Type: Spontaneous
  Country: US (occurrence: None)
  Receive Date: 20131223
  Receipt Date: 20131223
  Transmission Date: 20140711
  Serious: No
  Sender: FDA-Public Use
  Company Number: 220014LEO

PATIENT
  Sex: Female

DRUGS (3)
  1. PICATO [Suspect]
     Indication: ACTINIC KERATOSIS
     Route: 061
     Dates: start: 20121225, end: 20121227
  2. SIMVASTATION (SIMVASTATIN) [Concomitant]
  3. BABY ASA 9ACETYLSALICYLIC ACID) [Concomitant]

REACTIONS (3)
  - Application site erythema [None]
  - Application site pain [None]
  - Application site pain [None]
